FAERS Safety Report 8841967 (Version 3)
Quarter: 2012Q4

REPORT INFORMATION
  Report Type: 
  Country: JP (occurrence: JP)
  Receive Date: 20121016
  Receipt Date: 20121031
  Transmission Date: 20130627
  Serious: Yes (Hospitalization)
  Sender: FDA-Public Use
  Company Number: PHHY2012JP090655

PATIENT
  Age: 71 Year
  Sex: Female

DRUGS (2)
  1. VOLTAREN SR [Suspect]
     Indication: ARTHRALGIA
     Dosage: 37.5 mg, BID
     Route: 048
     Dates: start: 20101018, end: 20110628
  2. OLMETEC [Concomitant]
     Indication: HYPERTENSION
     Dosage: 10 mg, UNK
     Route: 048
     Dates: start: 20110214, end: 20110628

REACTIONS (5)
  - Nephrotic syndrome [Recovering/Resolving]
  - Urine output decreased [Recovering/Resolving]
  - Ascites [Recovering/Resolving]
  - Weight increased [Recovering/Resolving]
  - Oedema peripheral [Recovering/Resolving]
